FAERS Safety Report 6318760-1 (Version None)
Quarter: 2009Q3

REPORT INFORMATION
  Report Type: 
  Country: None (occurrence: None)
  Receive Date: 20090821
  Receipt Date: 20090814
  Transmission Date: 20100115
  Serious: Yes (Other)
  Sender: FDA-Public Use
  Company Number: US-AMGEN-QUU346605

PATIENT
  Sex: Female
  Weight: 61.3 kg

DRUGS (3)
  1. ENBREL [Suspect]
     Indication: JUVENILE ARTHRITIS
     Route: 058
     Dates: start: 19980901
  2. UNSPECIFIED MEDICATION [Suspect]
  3. PREDNISONE [Concomitant]
     Route: 048

REACTIONS (1)
  - INFERTILITY FEMALE [None]
